FAERS Safety Report 18616694 (Version 2)
Quarter: 2021Q1

REPORT INFORMATION
  Report Type: Spontaneous
  Country: US (occurrence: US)
  Receive Date: 20201215
  Receipt Date: 20210106
  Transmission Date: 20210419
  Serious: No
  Sender: FDA-Public Use
  Company Number: US-JNJFOC-20201211688

PATIENT
  Age: 68 Year
  Sex: Male
  Weight: 97.61 kg

DRUGS (2)
  1. ZYRTEC [Suspect]
     Active Substance: CETIRIZINE HYDROCHLORIDE
     Indication: SEASONAL ALLERGY
  2. ZYRTEC [Suspect]
     Active Substance: CETIRIZINE HYDROCHLORIDE
     Indication: MULTIPLE ALLERGIES
     Dosage: 1 TABLET, DATE OF LAST ADMINISTRATION: 02/DEC/2020
     Route: 048
     Dates: start: 20201120

REACTIONS (1)
  - Drug ineffective [Unknown]
